FAERS Safety Report 7967424-7 (Version None)
Quarter: 2011Q4

REPORT INFORMATION
  Report Type: 
  Country: None (occurrence: None)
  Receive Date: 20111209
  Receipt Date: 20111207
  Transmission Date: 20120403
  Serious: Yes (Death)
  Sender: FDA-Public Use
  Company Number: US-JNJFOC-20111203534

PATIENT
  Age: 54 Year
  Sex: Female

DRUGS (5)
  1. SEROQUEL [Concomitant]
     Indication: DEPRESSION
     Route: 065
     Dates: end: 20100101
  2. TEMAZEPAM [Concomitant]
     Indication: SLEEP DISORDER
     Route: 065
     Dates: end: 20100101
  3. COCAINE [Interacting]
     Indication: PRODUCT USED FOR UNKNOWN INDICATION
     Route: 065
  4. PERCOCET [Concomitant]
     Indication: PAIN
     Route: 065
     Dates: end: 20100101
  5. DURAGESIC-100 [Suspect]
     Indication: PAIN
     Route: 062

REACTIONS (4)
  - DRUG INTERACTION [None]
  - PRODUCT QUALITY ISSUE [None]
  - OVERDOSE [None]
  - ANALGESIC DRUG LEVEL INCREASED [None]
